FAERS Safety Report 24277714 (Version 1)
Quarter: 2024Q3

REPORT INFORMATION
  Report Type: Report from Study
  Country: US (occurrence: None)
  Receive Date: 20240903
  Receipt Date: 20240903
  Transmission Date: 20241017
  Serious: Yes (Other)
  Sender: ASTRAZENECA
  Company Number: 2024A198443

PATIENT
  Age: 24254 Day
  Sex: Female

DRUGS (20)
  1. FASENRA [Suspect]
     Active Substance: BENRALIZUMAB
     Indication: Asthma
     Dosage: 30MG/ML EVERY EIGHT WEEKS
     Route: 058
     Dates: start: 20240618
  2. BUDESONIDE [Suspect]
     Active Substance: BUDESONIDE
     Dosage: 1MG/2ML
     Route: 055
  3. NEXIUM [Suspect]
     Active Substance: ESOMEPRAZOLE MAGNESIUM
     Dosage: 40.0MG UNKNOWN
     Route: 048
  4. ROFLUMILAST [Suspect]
     Active Substance: ROFLUMILAST
     Dosage: 500.0UG UNKNOWN
     Route: 048
  5. SEROQUEL [Suspect]
     Active Substance: QUETIAPINE FUMARATE
     Dosage: 300.0MG UNKNOWN
     Route: 048
  6. ARFORMOTEROL [Concomitant]
     Active Substance: ARFORMOTEROL
     Dosage: 15MCG/M2
  7. AZELASTINE [Concomitant]
     Active Substance: AZELASTINE\AZELASTINE HYDROCHLORIDE
  8. AZITHROMYCIN [Concomitant]
     Active Substance: AZITHROMYCIN
  9. BUPROPION [Concomitant]
     Active Substance: BUPROPION
  10. CALCIUM [Concomitant]
     Active Substance: CALCIUM
  11. DILTIAZEM [Concomitant]
     Active Substance: DILTIAZEM
  12. DULOXETINE [Concomitant]
     Active Substance: DULOXETINE
  13. FOLIC ACID [Concomitant]
     Active Substance: FOLIC ACID
  14. GABAPENTIN [Concomitant]
     Active Substance: GABAPENTIN
  15. HYDROCODONE [Concomitant]
     Active Substance: HYDROCODONE
  16. ISOSORBIDE [Concomitant]
     Active Substance: ISOSORBIDE
  17. ISOSORBIDE [Concomitant]
     Active Substance: ISOSORBIDE
  18. TOPIRAMATE [Concomitant]
     Active Substance: TOPIRAMATE
  19. MENAQUINONE 6 [Concomitant]
     Active Substance: MENAQUINONE 6
  20. ZAFIRLUKAST [Concomitant]
     Active Substance: ZAFIRLUKAST

REACTIONS (11)
  - Hernia [Unknown]
  - Oxygen therapy [Not Recovered/Not Resolved]
  - Asthma [Unknown]
  - Dyspnoea [Not Recovered/Not Resolved]
  - Wheezing [Not Recovered/Not Resolved]
  - Sleep disorder [Not Recovered/Not Resolved]
  - Pain [Not Recovered/Not Resolved]
  - Fatigue [Not Recovered/Not Resolved]
  - Decreased appetite [Not Recovered/Not Resolved]
  - Disturbance in attention [Not Recovered/Not Resolved]
  - Movement disorder [Not Recovered/Not Resolved]

NARRATIVE: CASE EVENT DATE: 20240814
